FAERS Safety Report 21593013 (Version 1)
Quarter: 2022Q4

REPORT INFORMATION
  Report Type: Report from Study
  Country: US (occurrence: US)
  Receive Date: 20221114
  Receipt Date: 20221114
  Transmission Date: 20230113
  Serious: Yes (Hospitalization)
  Sender: FDA-Public Use
  Company Number: US-ABBVIE-4156582

PATIENT
  Sex: Female

DRUGS (1)
  1. RINVOQ [Suspect]
     Active Substance: UPADACITINIB
     Indication: Product used for unknown indication
     Route: 058

REACTIONS (5)
  - Diverticulitis [Recovered/Resolved]
  - Migraine [Unknown]
  - Dyspnoea [Unknown]
  - Hyperacusis [Unknown]
  - Body temperature [Unknown]

NARRATIVE: CASE EVENT DATE: 20220101
